FAERS Safety Report 18992437 (Version 1)
Quarter: 2021Q1

REPORT INFORMATION
  Report Type: Report from Study
  Country: FI (occurrence: FI)
  Receive Date: 20210310
  Receipt Date: 20210310
  Transmission Date: 20210420
  Serious: Yes (Hospitalization, Other)
  Sender: FDA-Public Use
  Company Number: FI-ASPEN-GLO2021FI001286

PATIENT

DRUGS (31)
  1. DEXAMETHASONE. [Suspect]
     Active Substance: DEXAMETHASONE
     Dosage: 10 MG, 1 DOSE 12 HOURS
     Route: 048
     Dates: start: 20210115, end: 20210118
  2. OXYCONTIN [Suspect]
     Active Substance: OXYCODONE HYDROCHLORIDE
     Dosage: 40 MG, 1 DOSE 12 HOURS
     Route: 048
     Dates: start: 20201122
  3. FURESIS [Concomitant]
     Active Substance: FUROSEMIDE
     Dosage: 20 MG, 1 DOSE 24 HOURS
     Route: 048
     Dates: start: 20201112
  4. PREDNISOLONE. [Concomitant]
     Active Substance: PREDNISOLONE
     Indication: STEROID THERAPY
     Dosage: 10 MG, 1 DOSE 24 HOURS
     Route: 048
  5. ONDANSETRON [Concomitant]
     Active Substance: ONDANSETRON
     Indication: NAUSEA
     Dosage: 16 MG, 1 DOSE 12 HOURS
     Route: 048
     Dates: start: 20201118
  6. DEXAMETHASONE. [Suspect]
     Active Substance: DEXAMETHASONE
     Dosage: 6 MG, 1 DOSE 12 HOURS
     Route: 048
     Dates: start: 20210118, end: 20210122
  7. DEXAMETHASONE. [Suspect]
     Active Substance: DEXAMETHASONE
     Dosage: 6 MG, 1 DOSE 12 HOURS
     Route: 048
     Dates: start: 20201130, end: 20201201
  8. DEXAMETHASONE. [Suspect]
     Active Substance: DEXAMETHASONE
     Dosage: 4 MG, 1 DOSE 12 HOURS
     Route: 048
     Dates: start: 20201202, end: 20201203
  9. LEVETIRACETAM. [Concomitant]
     Active Substance: LEVETIRACETAM
     Indication: NEUROTOXICITY
     Dosage: 1000 MG, 1 DOSE 12 HOURS
     Route: 048
     Dates: start: 20201125
  10. FURESIS [Concomitant]
     Active Substance: FUROSEMIDE
     Indication: OEDEMA PERIPHERAL
     Dosage: 40 MG, 1 DOSE 24 HOURS
     Route: 048
     Dates: start: 20201118
  11. DEXAMETHASONE. [Suspect]
     Active Substance: DEXAMETHASONE
     Dosage: 10 MG, QD (6+4 MG, 1 IN 12 HOURS)
     Route: 048
     Dates: start: 20210123
  12. FURESIS [Concomitant]
     Active Substance: FUROSEMIDE
     Dosage: 20 MG, 1 DOSE 24 HOURS
     Route: 048
     Dates: start: 20201215
  13. DEXAMETHASONE. [Suspect]
     Active Substance: DEXAMETHASONE
     Dosage: 10 MG, 1 DOSE 8 HOURS
     Route: 042
     Dates: start: 20201125
  14. CYCLOPHOSPHAMIDE. [Suspect]
     Active Substance: CYCLOPHOSPHAMIDE
     Indication: B-CELL LYMPHOMA
     Dosage: 300 MG/M2, QD
     Route: 042
     Dates: start: 20201111, end: 20201113
  15. TOCILIZUMAB. [Suspect]
     Active Substance: TOCILIZUMAB
     Indication: PYREXIA
     Dosage: UNK
     Route: 065
  16. CEFTRIAXONE. [Concomitant]
     Active Substance: CEFTRIAXONE
     Indication: PROPHYLAXIS
     Dosage: 2 G, 1 DOSE 24 HOURS
     Route: 042
     Dates: start: 20201121
  17. DEXAMETHASONE. [Suspect]
     Active Substance: DEXAMETHASONE
     Indication: CYTOKINE RELEASE SYNDROME
     Dosage: 9 MG, 1 DOSE 8 HOURS
     Route: 048
     Dates: start: 20201129, end: 20201130
  18. OXYCONTIN [Suspect]
     Active Substance: OXYCODONE HYDROCHLORIDE
     Indication: CANCER PAIN
     Dosage: 10 MG, 1 DOSE 12 HOURS
     Route: 048
     Dates: start: 20201221, end: 20201228
  19. DEXAMETHASONE. [Suspect]
     Active Substance: DEXAMETHASONE
     Dosage: 10 MG, 1 DOSE 24 HOURS
     Route: 042
     Dates: start: 20201121
  20. DEXAMETHASONE. [Suspect]
     Active Substance: DEXAMETHASONE
     Dosage: 10 MG, 1 DOSE 8 HOURS
     Route: 042
     Dates: start: 20201128, end: 20201129
  21. OXYCONTIN [Suspect]
     Active Substance: OXYCODONE HYDROCHLORIDE
     Indication: NEURALGIA
     Dosage: 30 MG, 1 DOSE 12 HOURS
     Route: 048
     Dates: start: 20201121
  22. OXYCONTIN [Suspect]
     Active Substance: OXYCODONE HYDROCHLORIDE
     Dosage: 20 MG, 1 DOSE 12 HOURS
     Route: 048
     Dates: start: 20201007
  23. COTRIM FORTE [Concomitant]
     Active Substance: SULFAMETHOXAZOLE\TRIMETHOPRIM
     Indication: INFECTION PROPHYLAXIS
     Dosage: 3 DOSAGE FORM, 1 DOSE WEEKLY
     Route: 048
     Dates: start: 20200819
  24. DEXAMETHASONE. [Suspect]
     Active Substance: DEXAMETHASONE
     Indication: STEROID THERAPY
     Dosage: 20 MG, 1 DOSE 8 HOURS
     Route: 042
     Dates: start: 20201126
  25. OXYCONTIN [Suspect]
     Active Substance: OXYCODONE HYDROCHLORIDE
     Dosage: UNK UNK, PRN
     Route: 048
     Dates: start: 20201121
  26. TOCILIZUMAB. [Suspect]
     Active Substance: TOCILIZUMAB
     Indication: CYTOKINE RELEASE SYNDROME
     Dosage: 760 MG, SINGLE
     Route: 042
     Dates: start: 20201121
  27. FLUDARABINE [Suspect]
     Active Substance: FLUDARABINE PHOSPHATE
     Indication: B-CELL LYMPHOMA
     Dosage: 30 MG/M2, QD
     Route: 042
     Dates: start: 20201111, end: 20201113
  28. SOMAC [Concomitant]
     Active Substance: PANTOPRAZOLE SODIUM
     Indication: PROPHYLAXIS
     Dosage: 40 MG, 1 DOSE 24 HOURS
     Route: 048
     Dates: start: 20201006
  29. PREDNISOLONE. [Concomitant]
     Active Substance: PREDNISOLONE
     Dosage: 20 MG, 1 DOSE 24 HOURS
     Route: 048
  30. FILGRASTIM [Concomitant]
     Active Substance: FILGRASTIM
     Indication: NEUTROPENIA
     Dosage: 48000000 IU, 1 DOSE 24 HOURS
     Route: 058
     Dates: start: 20201125
  31. PEGORION [Concomitant]
     Active Substance: POLYETHYLENE GLYCOL 4000
     Indication: CONSTIPATION PROPHYLAXIS
     Dosage: 24 MG, 1 DOSE 12 HOURS
     Route: 048
     Dates: start: 20201120

REACTIONS (6)
  - Muscular weakness [Recovered/Resolved with Sequelae]
  - Tremor [Unknown]
  - Dizziness [Unknown]
  - Constipation [Recovered/Resolved]
  - Urinary retention [Unknown]
  - Impaired self-care [Unknown]

NARRATIVE: CASE EVENT DATE: 20210110
